FAERS Safety Report 18994449 (Version 1)
Quarter: 2021Q1

REPORT INFORMATION
  Report Type: Spontaneous
  Country: GB (occurrence: GB)
  Receive Date: 20210311
  Receipt Date: 20210311
  Transmission Date: 20210420
  Serious: Yes (Hospitalization, Other)
  Sender: FDA-Public Use
  Company Number: GB-SA-2021SA069871

PATIENT
  Age: 34 Year
  Sex: Male

DRUGS (2)
  1. TAMOXIFEN [Suspect]
     Active Substance: TAMOXIFEN
     Indication: ANDROGEN DEFICIENCY
     Dosage: 20?40 MG QD
  2. CLOMIFENE CITRATE [Suspect]
     Active Substance: CLOMIPHENE
     Indication: ANDROGEN DEFICIENCY
     Dosage: 25?50 MG, QD

REACTIONS (7)
  - Headache [Unknown]
  - Confusional state [Unknown]
  - Blindness [Recovering/Resolving]
  - Embolism [Recovered/Resolved]
  - Atrial septal defect [Unknown]
  - Cerebral infarction [Recovering/Resolving]
  - Ischaemic stroke [Unknown]
